FAERS Safety Report 4957939-8 (Version None)
Quarter: 2006Q1

REPORT INFORMATION
  Report Type: 
  Country: None (occurrence: None)
  Receive Date: 20060330
  Receipt Date: 20050718
  Transmission Date: 20060701
  Serious: Yes (Hospitalization, Other)
  Sender: FDA-Public Use
  Company Number: US-MERCK-0507USA02277

PATIENT
  Age: 67 Year
  Sex: Male
  Weight: 130 kg

DRUGS (14)
  1. VIOXX [Suspect]
     Indication: ARTHRITIS
     Route: 048
     Dates: start: 20010101, end: 20040101
  2. VIOXX [Suspect]
     Indication: ARTHRALGIA
     Route: 048
     Dates: start: 20010101, end: 20040101
  3. CARDIZEM CD [Concomitant]
     Route: 065
  4. PREVACID [Concomitant]
     Route: 048
  5. FLOMAX [Concomitant]
     Route: 048
  6. ALLEGRA [Concomitant]
     Route: 048
  7. NORVASC [Suspect]
     Route: 048
     Dates: end: 20040924
  8. ASPIRIN [Concomitant]
     Route: 048
  9. ZOCOR [Concomitant]
     Route: 048
  10. HYDROCHLOROTHIAZIDE AND TRIAMTERENE [Concomitant]
     Route: 048
  11. PLAVIX [Concomitant]
     Route: 048
  12. DIOVAN [Concomitant]
     Route: 048
  13. TOPROL-XL [Concomitant]
     Route: 048
  14. TOPROL-XL [Concomitant]
     Route: 048

REACTIONS (22)
  - BLOOD CREATININE INCREASED [None]
  - BLOOD POTASSIUM DECREASED [None]
  - BLOOD PRESSURE INCREASED [None]
  - CAROTID ARTERY DISEASE [None]
  - CEREBROVASCULAR ACCIDENT [None]
  - CHEST DISCOMFORT [None]
  - CHEST PAIN [None]
  - CORONARY ARTERY DISEASE [None]
  - CORONARY ARTERY STENOSIS [None]
  - DIZZINESS [None]
  - DYSPNOEA EXERTIONAL [None]
  - FATIGUE [None]
  - GLUCOSE TOLERANCE IMPAIRED [None]
  - HYPERTENSIVE HEART DISEASE [None]
  - HYPOKALAEMIA [None]
  - HYPOVOLAEMIA [None]
  - MUSCLE TWITCHING [None]
  - MYOCARDIAL ISCHAEMIA [None]
  - OEDEMA PERIPHERAL [None]
  - SWELLING [None]
  - SYNCOPE [None]
  - THALAMIC INFARCTION [None]
